FAERS Safety Report 5715234-3 (Version None)
Quarter: 2008Q2

REPORT INFORMATION
  Report Type: 
  Country: None (occurrence: None)
  Receive Date: 20080423
  Receipt Date: 20080414
  Transmission Date: 20081010
  Serious: Yes (Death, Life-Threatening, Hospitalization, Disabling)
  Sender: FDA-Public Use
  Company Number: GB-PFIZER INC-2007084927

PATIENT
  Age: 67 Year
  Sex: Male
  Weight: 111 kg

DRUGS (28)
  1. DOXYCYCLINE [Interacting]
     Route: 048
  2. ERYTHROMYCIN [Suspect]
     Indication: LOWER RESPIRATORY TRACT INFECTION
     Route: 048
  3. ACOMPLIA [Interacting]
     Indication: WEIGHT DECREASED
     Route: 048
  4. ALLOPURINOL [Concomitant]
     Route: 048
  5. AMOXICILLIN [Concomitant]
     Route: 048
  6. ACETYLSALICYLIC ACID SRT [Concomitant]
     Route: 048
  7. ATORVASTATIN CALCIUM [Concomitant]
     Route: 048
  8. BUDESONIDE [Concomitant]
     Route: 055
  9. CHLORHEXIDINE GLUCONATE [Concomitant]
     Route: 048
  10. CIALIS [Concomitant]
     Route: 048
  11. DAKTACORT [Concomitant]
     Route: 061
  12. DIPROBASE, UNSPECIFIED [Concomitant]
     Route: 061
  13. MINERAL OIL [Concomitant]
     Route: 061
  14. DOXYCYCLINE [Concomitant]
     Route: 048
  15. FORMOTEROL [Concomitant]
     Route: 055
  16. FORMOTEROL FUMARATE [Concomitant]
     Route: 055
  17. FUROSEMIDE [Concomitant]
     Route: 048
  18. GLIPIZIDE [Concomitant]
     Route: 048
  19. HYDROCHLOROTHIAZIDE [Concomitant]
     Route: 048
  20. LANSOPRAZOLE [Concomitant]
     Route: 048
  21. LISINOPRIL [Concomitant]
     Route: 048
  22. METFORMIN HCL [Concomitant]
     Route: 048
  23. MICONAZOLE [Concomitant]
  24. PREDNISOLONE [Concomitant]
     Route: 048
  25. RAMIPRIL [Concomitant]
     Route: 048
  26. ROSIGLITAZONE [Concomitant]
     Route: 048
  27. SALAMOL [Concomitant]
     Route: 055
  28. TIOTROPIUM BROMIDE [Concomitant]
     Route: 055

REACTIONS (12)
  - ANAEMIA [None]
  - CONFUSIONAL STATE [None]
  - DIARRHOEA [None]
  - DRUG INTERACTION [None]
  - DYSPNOEA [None]
  - EOSINOPHILIA [None]
  - HYPOTENSION [None]
  - PNEUMONIA FUNGAL [None]
  - PYREXIA [None]
  - RENAL FAILURE ACUTE [None]
  - STEVENS-JOHNSON SYNDROME [None]
  - TOXIC SHOCK SYNDROME [None]
